FAERS Safety Report 9278350 (Version 1)
Quarter: 2013Q2

REPORT INFORMATION
  Report Type: Spontaneous
  Country: US (occurrence: None)
  Receive Date: 20130506
  Receipt Date: 20130506
  Transmission Date: 20140414
  Serious: Yes (Other)
  Sender: FDA-Public Use
  Company Number: None

PATIENT
  Age: 48 Year
  Sex: Female
  Weight: 64.86 kg

DRUGS (1)
  1. CEPHALEXIN [Suspect]
     Indication: CYSTITIS
     Dosage: 500 MG TWICE DAILY PO
     Route: 048
     Dates: start: 20130429, end: 20130503

REACTIONS (1)
  - Headache [None]
